FAERS Safety Report 14663929 (Version 1)
Quarter: 2018Q1

REPORT INFORMATION
  Report Type: Spontaneous
  Country: US (occurrence: US)
  Receive Date: 20180321
  Receipt Date: 20180321
  Transmission Date: 20180509
  Serious: Yes (Death, Other)
  Sender: FDA-Public Use
  Company Number: US-SUNOVION-2018SUN001034

PATIENT
  Age: 78 Year
  Sex: Male

DRUGS (1)
  1. LONHALA MAGNAIR [Suspect]
     Active Substance: GLYCOPYRROLATE
     Indication: CHRONIC OBSTRUCTIVE PULMONARY DISEASE
     Dosage: 25MCG/1ML BID
     Route: 055
     Dates: start: 20180220

REACTIONS (4)
  - Death [Fatal]
  - Cough [Unknown]
  - Diarrhoea [Unknown]
  - Chest discomfort [Unknown]
